FAERS Safety Report 6031297-2 (Version None)
Quarter: 2008Q4

REPORT INFORMATION
  Report Type: 
  Country: None (occurrence: None)
  Receive Date: 20081222
  Receipt Date: 20081017
  Transmission Date: 20090506
  Serious: No
  Sender: FDA-Public Use
  Company Number: US-WYE-H06480208

PATIENT
  Age: 74 Year
  Sex: Male

DRUGS (2)
  1. PRISTIQ [Suspect]
     Indication: DEPRESSION
     Dosage: 50 MG 1X PER 1 DAY, ORAL
     Route: 048
     Dates: start: 20081001, end: 20081016
  2. WELLBUTRIN [Concomitant]

REACTIONS (5)
  - HEADACHE [None]
  - MICTURITION URGENCY [None]
  - MUSCLE TIGHTNESS [None]
  - PAIN [None]
  - POLLAKIURIA [None]
